FAERS Safety Report 8316722-6 (Version None)
Quarter: 2012Q2

REPORT INFORMATION
  Report Type: 
  Country: None (occurrence: None)
  Receive Date: 20120427
  Receipt Date: 20120416
  Transmission Date: 20120825
  Serious: Yes (Other)
  Sender: FDA-Public Use
  Company Number: TR-AMGEN-TURSP2012005936

PATIENT
  Age: 46 Year
  Sex: Male

DRUGS (2)
  1. ENBREL [Suspect]
     Dosage: 50 MG, WEEKLY
     Route: 058
     Dates: start: 20111020
  2. ENBREL [Suspect]
     Indication: ANKYLOSING SPONDYLITIS
     Dosage: 50 MG, WEEKLY
     Route: 058
     Dates: start: 20060101, end: 20111114

REACTIONS (6)
  - HYPERTENSION [None]
  - VISION BLURRED [None]
  - BLOOD PRESSURE INCREASED [None]
  - INJECTION SITE PRURITUS [None]
  - MEDICAL DEVICE COMPLICATION [None]
  - UVEITIS [None]
